FAERS Safety Report 7979973-6 (Version None)
Quarter: 2011Q4

REPORT INFORMATION
  Report Type: 
  Country: None (occurrence: None)
  Receive Date: 20111214
  Receipt Date: 20111111
  Transmission Date: 20120403
  Serious: No
  Sender: FDA-Public Use
  Company Number: US-BAYER-2011-110466

PATIENT
  Age: 88 Year
  Sex: Female
  Weight: 86 kg

DRUGS (5)
  1. NAPROXEN (ALEVE) [Suspect]
     Indication: HEADACHE
     Dosage: UNK
     Route: 048
     Dates: start: 20111111, end: 20111111
  2. CEPHALEXIN [Concomitant]
  3. ALEVE (CAPLET) [Suspect]
     Indication: ANALGESIC THERAPY
     Dosage: 2 DF, ONCE
     Route: 048
     Dates: start: 20111111, end: 20111111
  4. HYDROXYZINE [Concomitant]
  5. VENTOLIN HFA [Concomitant]

REACTIONS (1)
  - NO ADVERSE EVENT [None]
